FAERS Safety Report 10584418 (Version 1)
Quarter: 2014Q4

REPORT INFORMATION
  Report Type: Spontaneous
  Country: CH (occurrence: None)
  Receive Date: 20141112
  Receipt Date: 20141112
  Transmission Date: 20150529
  Serious: Yes (Other)
  Sender: FDA-Public Use
  Company Number: 20140697

PATIENT
  Sex: Male

DRUGS (1)
  1. FERINJECT [Suspect]
     Active Substance: FERRIC CARBOXYMALTOSE
     Indication: MIGRAINE
     Dosage: 8 GM OVER 1 YEAR

REACTIONS (4)
  - Overdose [None]
  - Drug prescribing error [None]
  - Haemochromatosis [None]
  - Off label use [None]
